FAERS Safety Report 15320857 (Version 1)
Quarter: 2018Q3

REPORT INFORMATION
  Report Type: Spontaneous
  Country: US (occurrence: US)
  Receive Date: 20180821
  Receipt Date: 20180821
  Transmission Date: 20181010
  Serious: Yes (Hospitalization)
  Sender: FDA-Public Use
  Company Number: None

PATIENT
  Age: 54 Year
  Sex: Male
  Weight: 76.52 kg

DRUGS (1)
  1. VECTIBIX [Suspect]
     Active Substance: PANITUMUMAB
     Indication: RECTAL CANCER METASTATIC
     Dosage: ?          OTHER FREQUENCY:Q 14 DAYS ;?
     Route: 042
     Dates: start: 20180123

REACTIONS (1)
  - Thrombotic stroke [None]

NARRATIVE: CASE EVENT DATE: 20180722
